FAERS Safety Report 26199569 (Version 1)
Quarter: 2025Q4

REPORT INFORMATION
  Report Type: Spontaneous
  Country: CA (occurrence: CA)
  Receive Date: 20251225
  Receipt Date: 20251225
  Transmission Date: 20260117
  Serious: Yes (Death, Life-Threatening, Hospitalization, Disabling, Congenital Anomaly, Other)
  Sender: GLAXOSMITHKLINE
  Company Number: CA-GSK-CA2025160380

PATIENT
  Age: 43 Year
  Sex: Female
  Weight: 96 kg

DRUGS (51)
  1. NUCALA [Suspect]
     Active Substance: MEPOLIZUMAB
     Indication: Product used for unknown indication
     Dosage: UNK
     Route: 065
  2. AIMOVIG [Suspect]
     Active Substance: ERENUMAB-AOOE
     Indication: Migraine
     Dosage: UNK
     Route: 065
  3. ALENDRONATE SODIUM [Suspect]
     Active Substance: ALENDRONATE SODIUM
     Indication: Rheumatoid arthritis
     Dosage: UNK
  4. HYDROCORTISONE [Suspect]
     Active Substance: HYDROCORTISONE
     Indication: Product used for unknown indication
     Dosage: UNK
  5. HYDROCORTISONE [Suspect]
     Active Substance: HYDROCORTISONE
     Dosage: UNK
     Route: 065
  6. PANTOPRAZOLE SODIUM [Suspect]
     Active Substance: PANTOPRAZOLE SODIUM
     Indication: Product used for unknown indication
     Dosage: UNK
     Route: 065
  7. CALCIUM CARBONATE [Suspect]
     Active Substance: CALCIUM CARBONATE
     Indication: Product used for unknown indication
     Dosage: UNK
     Route: 065
  8. CHLORHEXIDINE GLUCONATE [Suspect]
     Active Substance: CHLORHEXIDINE GLUCONATE
     Indication: Product used for unknown indication
     Dosage: UNK
     Route: 065
  9. HYDROXYCHLOROQUINE SULFATE [Suspect]
     Active Substance: HYDROXYCHLOROQUINE SULFATE
     Indication: Product used for unknown indication
     Dosage: 400 MG, QD (1 EVERY 1 DAYS)
  10. HYDROXYCHLOROQUINE SULFATE [Suspect]
     Active Substance: HYDROXYCHLOROQUINE SULFATE
     Dosage: 40 MG
     Route: 065
  11. HYDROXYCHLOROQUINE SULFATE [Suspect]
     Active Substance: HYDROXYCHLOROQUINE SULFATE
     Dosage: UNK
     Route: 065
  12. HYDROXYCHLOROQUINE SULFATE [Suspect]
     Active Substance: HYDROXYCHLOROQUINE SULFATE
     Dosage: 1 DF, QD  (1 EVERY 1 DAYS)
  13. HYDROXYCHLOROQUINE SULFATE [Suspect]
     Active Substance: HYDROXYCHLOROQUINE SULFATE
     Dosage: 400 MG
  14. HYDROXYCHLOROQUINE SULFATE [Suspect]
     Active Substance: HYDROXYCHLOROQUINE SULFATE
     Dosage: 420 MG (1 EVERY 1 DAYS)
  15. HYDROXYCHLOROQUINE SULFATE [Suspect]
     Active Substance: HYDROXYCHLOROQUINE SULFATE
     Dosage: 400 MG
     Route: 065
  16. HYDROXYCHLOROQUINE SULFATE [Suspect]
     Active Substance: HYDROXYCHLOROQUINE SULFATE
     Dosage: 420 MG
     Route: 065
  17. HYDROXYCHLOROQUINE SULFATE [Suspect]
     Active Substance: HYDROXYCHLOROQUINE SULFATE
     Dosage: 40 MG
  18. CORTISONE [Suspect]
     Active Substance: CORTISONE
     Indication: Rheumatoid arthritis
     Dosage: 25 MG, CORTISONE (HYDROCORTISONE ACETATE)
  19. CORTISONE [Suspect]
     Active Substance: CORTISONE
     Dosage: UNK,CORTISONE (HYDROCORTISONE ACETATE)
  20. CORTISONE [Suspect]
     Active Substance: CORTISONE
     Dosage: UNK,CORTISONE (HYDROCORTISONE ACETATE)
  21. COSENTYX [Suspect]
     Active Substance: SECUKINUMAB
     Indication: Psoriatic arthropathy
     Dosage: UNK
     Route: 065
  22. DICLOFENAC [Suspect]
     Active Substance: DICLOFENAC
     Indication: Product used for unknown indication
     Dosage: 50 MG
     Route: 065
  23. DICLOFENAC POTASSIUM [Suspect]
     Active Substance: DICLOFENAC POTASSIUM
     Indication: Product used for unknown indication
     Dosage: 50 MG
     Route: 065
  24. ENTYVIO [Suspect]
     Active Substance: VEDOLIZUMAB
     Indication: Product used for unknown indication
     Dosage: UNK
  25. ERELZI [Suspect]
     Active Substance: ETANERCEPT-SZZS
     Indication: Rheumatoid arthritis
     Dosage: 50 MG, WE(1 EVERY 1 WEEKS)
     Route: 065
  26. ERELZI [Suspect]
     Active Substance: ETANERCEPT-SZZS
     Dosage: UNK
  27. ERELZI [Suspect]
     Active Substance: ETANERCEPT-SZZS
     Dosage: 50 MG, WE (1 EVERY 1 WEEKS)
  28. ERENUMAB [Suspect]
     Active Substance: ERENUMAB
     Indication: Migraine
     Dosage: UNK
     Route: 065
  29. ASIAN GINSENG [Suspect]
     Active Substance: ASIAN GINSENG
     Indication: Product used for unknown indication
     Dosage: UNK
     Route: 065
  30. GOLD SODIUM THIOMALATE [Suspect]
     Active Substance: GOLD SODIUM THIOMALATE
     Indication: Product used for unknown indication
     Dosage: UNK
     Route: 065
  31. HUMIRA [Suspect]
     Active Substance: ADALIMUMAB
     Indication: Rheumatoid arthritis
     Dosage: 4 MG
  32. HUMIRA [Suspect]
     Active Substance: ADALIMUMAB
     Dosage: UNK
  33. HUMIRA [Suspect]
     Active Substance: ADALIMUMAB
     Dosage: UNK
  34. HUMIRA [Suspect]
     Active Substance: ADALIMUMAB
     Dosage: 40 MG (SOLUTION SUBCUTANEOUS)
  35. INOSITOL [Suspect]
     Active Substance: INOSITOL
     Indication: Product used for unknown indication
     Dosage: UNK
     Route: 065
  36. MYCOPHENOLATE MOFETIL [Suspect]
     Active Substance: MYCOPHENOLATE MOFETIL
     Indication: Product used for unknown indication
     Dosage: UNK
     Route: 065
  37. TOFACITINIB CITRATE [Suspect]
     Active Substance: TOFACITINIB CITRATE
     Indication: Rheumatoid arthritis
     Dosage: 10 MG, QD
     Route: 065
  38. TOFACITINIB CITRATE [Suspect]
     Active Substance: TOFACITINIB CITRATE
     Dosage: 0.5 MG, QD
     Route: 065
  39. TRIAMCINOLONE ACETONIDE [Suspect]
     Active Substance: TRIAMCINOLONE ACETONIDE
     Indication: Rheumatoid arthritis
     Dosage: UNK(SUSPENSION INTRA- ARTICULAR)
  40. METHYLPREDNISOLONE SODIUM SUCCINATE [Suspect]
     Active Substance: METHYLPREDNISOLONE SODIUM SUCCINATE
     Indication: Product used for unknown indication
     Dosage: UNK
     Route: 065
  41. NAPROXEN [Suspect]
     Active Substance: NAPROXEN
     Indication: Product used for unknown indication
     Dosage: UNK
     Route: 065
  42. NAPROXEN SODIUM [Suspect]
     Active Substance: NAPROXEN SODIUM
     Indication: Rheumatoid arthritis
     Dosage: UNK
     Route: 065
  43. OXYCODONE [Suspect]
     Active Substance: OXYCODONE
     Indication: Product used for unknown indication
     Dosage: UNK
     Route: 065
  44. PERIOGARD [Suspect]
     Active Substance: CHLORHEXIDINE GLUCONATE
     Indication: Product used for unknown indication
     Dosage: UNK(BUCCAL)
  45. HYRIMOZ [Suspect]
     Active Substance: ADALIMUMAB-ADAZ
     Indication: Rheumatoid arthritis
     Dosage: 40 MG, WE (1 EVERY 1 WEEKS)
  46. HYRIMOZ [Suspect]
     Active Substance: ADALIMUMAB-ADAZ
     Dosage: 40 MG, WE (1 EVERY 2 WEEKS)
  47. HYRIMOZ [Suspect]
     Active Substance: ADALIMUMAB-ADAZ
     Dosage: 40 MG
  48. HYRIMOZ [Suspect]
     Active Substance: ADALIMUMAB-ADAZ
     Dosage: 40 MG, SOLUTION SUBCUTANEOUS
     Route: 065
  49. HYRIMOZ [Suspect]
     Active Substance: ADALIMUMAB-ADAZ
     Dosage: 40 MG 9SOLUTION SUBCUTANEOUS)
     Route: 065
  50. ISOPROPYL ALCOHOL [Suspect]
     Active Substance: ISOPROPYL ALCOHOL
     Indication: Product used for unknown indication
     Dosage: UNK
     Route: 065
  51. SULFAMETHOXAZOLE [Suspect]
     Active Substance: SULFAMETHOXAZOLE
     Indication: Product used for unknown indication
     Dosage: 1 DF
     Route: 065

REACTIONS (63)
  - Adjustment disorder with depressed mood [Fatal]
  - Alopecia [Fatal]
  - Amnesia [Fatal]
  - Anti-cyclic citrullinated peptide antibody positive [Fatal]
  - Arthralgia [Fatal]
  - Arthropathy [Fatal]
  - Back disorder [Fatal]
  - Bone erosion [Fatal]
  - Breast cancer stage II [Fatal]
  - Breast cancer stage III [Fatal]
  - C-reactive protein abnormal [Fatal]
  - Chest pain [Fatal]
  - Condition aggravated [Fatal]
  - Contusion [Fatal]
  - Decreased appetite [Fatal]
  - Delirium [Fatal]
  - Discomfort [Fatal]
  - Dislocation of vertebra [Fatal]
  - Drug hypersensitivity [Fatal]
  - Drug ineffective [Fatal]
  - Drug intolerance [Fatal]
  - Dyspepsia [Fatal]
  - Dyspnoea [Fatal]
  - Epilepsy [Fatal]
  - Fatigue [Fatal]
  - Fibromyalgia [Fatal]
  - Fluid retention [Fatal]
  - Gait inability [Fatal]
  - General physical health deterioration [Fatal]
  - Glossodynia [Fatal]
  - Hand deformity [Fatal]
  - Helicobacter infection [Fatal]
  - Hepatic enzyme increased [Fatal]
  - Hypoaesthesia [Fatal]
  - Incorrect route of product administration [Fatal]
  - Infection [Fatal]
  - Infusion related reaction [Fatal]
  - Injury [Fatal]
  - Joint range of motion decreased [Fatal]
  - Joint swelling [Fatal]
  - Lip dry [Fatal]
  - Liver disorder [Fatal]
  - Liver injury [Fatal]
  - Lower limb fracture [Fatal]
  - Lower respiratory tract infection [Fatal]
  - Lung disorder [Fatal]
  - Malaise [Fatal]
  - Memory impairment [Fatal]
  - Musculoskeletal pain [Fatal]
  - Nausea [Fatal]
  - Oedema [Fatal]
  - Off label use [Fatal]
  - Pemphigus [Fatal]
  - Prescribed overdose [Fatal]
  - Prescribed underdose [Fatal]
  - Product use issue [Fatal]
  - Pulmonary fibrosis [Fatal]
  - Rheumatoid arthritis [Fatal]
  - Rheumatoid factor positive [Fatal]
  - Road traffic accident [Fatal]
  - Synovitis [Fatal]
  - Systemic lupus erythematosus [Fatal]
  - Wound [Fatal]
